FAERS Safety Report 8351486-1 (Version None)
Quarter: 2012Q2

REPORT INFORMATION
  Report Type: 
  Country: None (occurrence: None)
  Receive Date: 20120510
  Receipt Date: 20120425
  Transmission Date: 20120825
  Serious: Yes (Other)
  Sender: FDA-Public Use
  Company Number: CHPA2012US009963

PATIENT
  Age: 81 Year
  Sex: Female

DRUGS (3)
  1. MAALOX ANTACID/ANTIGAS MAX LIQ UNKNOWN [Suspect]
     Indication: DYSPEPSIA
     Dosage: 2 TSP, PRN
     Route: 048
  2. PEPCID [Concomitant]
     Dosage: 40 MG, UNK
  3. MAALOX MAX ANTACID+ANTIGAS [Suspect]
     Indication: DYSPEPSIA
     Dosage: 2 DF, PRN
     Route: 048

REACTIONS (5)
  - NAUSEA [None]
  - THERAPEUTIC RESPONSE UNEXPECTED [None]
  - DISEASE RECURRENCE [None]
  - OSTEOPOROSIS [None]
  - STOMACH MASS [None]
